FAERS Safety Report 5489678-1 (Version None)
Quarter: 2007Q4

REPORT INFORMATION
  Report Type: 
  Country: None (occurrence: None)
  Receive Date: 20071018
  Receipt Date: 20071010
  Transmission Date: 20080405
  Serious: Yes (Hospitalization)
  Sender: FDA-Public Use
  Company Number: GB-ROCHE-524561

PATIENT
  Age: 58 Year
  Sex: Female
  Weight: 139.7 kg

DRUGS (9)
  1. ORLISTAT [Suspect]
     Indication: OBESITY
     Route: 048
     Dates: start: 20070517, end: 20070926
  2. CEPHALEXIN [Concomitant]
     Route: 048
     Dates: start: 20070926
  3. METFORMIN HCL [Concomitant]
     Route: 048
  4. ATORVASTATIN CALCIUM [Concomitant]
     Dosage: DOSAGE REPORTED: 10MG NOCTE
     Route: 048
  5. LANSOPRAZOLE [Concomitant]
     Route: 048
  6. CO CODAMOL [Concomitant]
     Indication: ARTHRITIS
     Route: 048
  7. SALBUTAMOL [Concomitant]
     Indication: ASTHMA
     Route: 055
  8. GTN SPRAY [Concomitant]
     Indication: ANGINA PECTORIS
     Route: 060
     Dates: start: 20070926
  9. ASPIRIN [Concomitant]
     Route: 048

REACTIONS (3)
  - ANGINA PECTORIS [None]
  - LOWER RESPIRATORY TRACT INFECTION [None]
  - PULMONARY OEDEMA [None]
